FAERS Safety Report 8390680-0 (Version None)
Quarter: 2012Q2

REPORT INFORMATION
  Report Type: 
  Country: None (occurrence: None)
  Receive Date: 20120529
  Receipt Date: 20120522
  Transmission Date: 20120825
  Serious: Yes (Other)
  Sender: FDA-Public Use
  Company Number: PHHY2012JP044013

PATIENT
  Age: 56 Year
  Sex: Male

DRUGS (2)
  1. GEMCITABINE [Concomitant]
     Dosage: UNK UKN, UNK
  2. FLUOROURACIL [Suspect]
     Dosage: 1000 MG/M2, QW FOR 3 WEEKS OF A 4-WEEK CYCLE

REACTIONS (2)
  - HEPATIC ARTERY STENOSIS [None]
  - BILOMA [None]
